FAERS Safety Report 14961292 (Version 1)
Quarter: 2018Q2

REPORT INFORMATION
  Report Type: Spontaneous
  Country: HU (occurrence: HU)
  Receive Date: 20180601
  Receipt Date: 20180601
  Transmission Date: 20180711
  Serious: Yes (Other)
  Sender: FDA-Public Use
  Company Number: HU-ROCHE-2132473

PATIENT
  Age: 54 Year
  Sex: Female

DRUGS (5)
  1. SUPRASTIN [Concomitant]
     Active Substance: CHLOROPYRAMINE HYDROCHLORIDE
     Route: 042
  2. MABTHERA [Suspect]
     Active Substance: RITUXIMAB
     Indication: B-CELL LYMPHOMA
     Route: 042
  3. ALGOPYRIN [Concomitant]
     Active Substance: METAMIZOLE SODIUM
     Route: 042
  4. SALSOL (HUNGARY) [Concomitant]
     Route: 042
  5. CERUCAL [Concomitant]
     Active Substance: METOCLOPRAMIDE HYDROCHLORIDE
     Route: 042

REACTIONS (5)
  - Flushing [Recovered/Resolved]
  - Loss of consciousness [Recovered/Resolved]
  - Apnoea [Recovered/Resolved]
  - Feeling hot [Recovered/Resolved]
  - Vomiting [Recovered/Resolved]
